FAERS Safety Report 13586940 (Version 1)
Quarter: 2017Q2

REPORT INFORMATION
  Report Type: Spontaneous
  Country: US (occurrence: US)
  Receive Date: 20170526
  Receipt Date: 20170526
  Transmission Date: 20170830
  Serious: Yes (Other)
  Sender: FDA-Public Use
  Company Number: US-ROCHE-625930

PATIENT
  Age: 86 Year
  Sex: Male

DRUGS (8)
  1. LEVOTHYROXINE. [Concomitant]
     Active Substance: LEVOTHYROXINE
     Route: 065
  2. NAPROXEN. [Suspect]
     Active Substance: NAPROXEN
     Indication: PRODUCT USED FOR UNKNOWN INDICATION
     Dosage: DRUG NAME REPORTED AS NAPROXEN
     Route: 065
  3. LYSINE [Concomitant]
     Active Substance: LYSINE
     Route: 065
  4. METAMUCIL INSTANT MIX [Concomitant]
     Dosage: DRUG NAME REPORTED AS METAMUCIL.  GENERIC NAME REPORTED AS PSYLLIUM HYDROPHILLIC MUCILLOID.
     Route: 065
  5. ONE-A-DAY MEN^S FORMULA [Suspect]
     Active Substance: VITAMINS
     Indication: NUTRITIONAL SUPPLEMENTATION
     Dosage: DRUG REPORTED AS ONE-A-DAY MEN^S HEALTH VITAMIN. FREQUENCY REPORTED AS DAILY.
     Route: 065
     Dates: start: 20090327, end: 20090328
  6. TAMSULOSIN [Concomitant]
     Active Substance: TAMSULOSIN
     Dosage: DRUG GENERIC REPORTED AS TAMSULOSIN HYDROCHLORIDE
     Route: 065
  7. METRONIDAZOLE. [Concomitant]
     Active Substance: METRONIDAZOLE
     Route: 061
  8. COL-RITE [Concomitant]
     Active Substance: DOCUSATE SODIUM
     Dosage: DRUG NAME REPORTED AS RITE AID COL-RITE STOOL SOFTENER.
     Route: 065

REACTIONS (1)
  - Haematochezia [Unknown]

NARRATIVE: CASE EVENT DATE: 20090328
